FAERS Safety Report 10609852 (Version 2)
Quarter: 2014Q4

REPORT INFORMATION
  Report Type: Spontaneous
  Country: US (occurrence: None)
  Receive Date: 20141124
  Receipt Date: 20141208
  Transmission Date: 20150529
  Serious: Yes (Hospitalization, Other)
  Sender: FDA-Public Use
  Company Number: 2014COV00155

PATIENT
  Age: 55 Year
  Sex: Female
  Weight: 74.4 kg

DRUGS (3)
  1. DIBENZYLINE [Suspect]
     Active Substance: PHENOXYBENZAMINE HYDROCHLORIDE
     Indication: PHAEOCHROMOCYTOMA
     Dosage: 1 TABLETS, 3X/DAY, ORAL
     Route: 048
     Dates: start: 20140606, end: 20140607
  2. VALIUM? [Concomitant]
  3. PRINIVIL [Concomitant]
     Active Substance: LISINOPRIL

REACTIONS (7)
  - Flushing [None]
  - Hospitalisation [None]
  - Palpitations [None]
  - Heart rate increased [None]
  - Cardiac disorder [None]
  - Adrenal gland operation [None]
  - Blood pressure increased [None]

NARRATIVE: CASE EVENT DATE: 20140607
